FAERS Safety Report 16782297 (Version 1)
Quarter: 2019Q3

REPORT INFORMATION
  Report Type: Report from Study
  Country: BR (occurrence: BR)
  Receive Date: 20190906
  Receipt Date: 20190906
  Transmission Date: 20191005
  Serious: Yes (Life-Threatening)
  Sender: FDA-Public Use
  Company Number: PHHY2019BR207532

PATIENT
  Age: 64 Year
  Sex: Female

DRUGS (4)
  1. ADRENALIN [Suspect]
     Active Substance: EPINEPHRINE
     Indication: APPARENT DEATH
     Dosage: UNK
     Route: 065
  2. XOLAIR [Suspect]
     Active Substance: OMALIZUMAB
     Indication: URTICARIA
     Dosage: UNK
     Route: 065
     Dates: start: 20181009
  3. FLUOXETINE [Suspect]
     Active Substance: FLUOXETINE HYDROCHLORIDE
     Indication: PRODUCT USED FOR UNKNOWN INDICATION
     Dosage: UNK
     Route: 065
  4. XOLAIR [Suspect]
     Active Substance: OMALIZUMAB
     Dosage: UNK
     Route: 065
     Dates: start: 20190116

REACTIONS (11)
  - Dysuria [Unknown]
  - Feeling abnormal [Unknown]
  - Speech disorder [Unknown]
  - Dyspnoea [Unknown]
  - Malaise [Unknown]
  - Fatigue [Unknown]
  - Swelling [Unknown]
  - Spinal disorder [Unknown]
  - Dysphonia [Unknown]
  - Pain [Unknown]
  - Urticaria [Unknown]

NARRATIVE: CASE EVENT DATE: 201907
